FAERS Safety Report 9962295 (Version 1)
Quarter: 2014Q1

REPORT INFORMATION
  Report Type: Report from Study
  Country: US (occurrence: US)
  Receive Date: 20140305
  Receipt Date: 20140305
  Transmission Date: 20141002
  Serious: No
  Sender: FDA-Public Use
  Company Number: US-ABBVIE-13P-163-1116500-00

PATIENT
  Age: 42 Year
  Sex: Female

DRUGS (5)
  1. HUMIRA [Suspect]
     Indication: CROHN^S DISEASE
     Dosage: LOADING DOSE DAY 1
     Dates: start: 20130625, end: 20130625
  2. HUMIRA [Suspect]
     Dosage: DAY 15
  3. HUMIRA [Suspect]
  4. AMBIEN [Concomitant]
     Indication: PRODUCT USED FOR UNKNOWN INDICATION
     Dosage: AT BEDTIME
     Route: 048
  5. ZEGERID [Concomitant]
     Indication: PRODUCT USED FOR UNKNOWN INDICATION
     Route: 048

REACTIONS (8)
  - Skin discolouration [Not Recovered/Not Resolved]
  - Rash [Recovered/Resolved]
  - Injection site swelling [Unknown]
  - Injection site bruising [Unknown]
  - Injection site urticaria [Unknown]
  - Rash generalised [Unknown]
  - Weight increased [Unknown]
  - Dyspnoea exertional [Unknown]
